FAERS Safety Report 7602113-X (Version None)
Quarter: 2011Q3

REPORT INFORMATION
  Report Type: 
  Country: None (occurrence: None)
  Receive Date: 20110711
  Receipt Date: 20110711
  Transmission Date: 20111222
  Serious: No
  Sender: FDA-Public Use
  Company Number: None

PATIENT
  Sex: Male
  Weight: 79.1 kg

DRUGS (1)
  1. CYTARABINE [Suspect]
     Indication: WALDENSTROM'S MACROGLOBULINAEMIA
     Dates: start: 20090901, end: 20091101

REACTIONS (1)
  - CAUDA EQUINA SYNDROME [None]
